FAERS Safety Report 14942905 (Version 3)
Quarter: 2018Q3

REPORT INFORMATION
  Report Type: Spontaneous
  Country: DE (occurrence: DE)
  Receive Date: 20180528
  Receipt Date: 20180925
  Transmission Date: 20181010
  Serious: Yes (Death, Hospitalization, Other)
  Sender: FDA-Public Use
  Company Number: DE-009507513-1805DEU010333

PATIENT
  Age: 81 Year
  Sex: Male
  Weight: 75 kg

DRUGS (1)
  1. KEYTRUDA [Suspect]
     Active Substance: PEMBROLIZUMAB
     Indication: BRONCHIAL CARCINOMA
     Dosage: 200 MG, QD
     Route: 042
     Dates: start: 20180326, end: 20180326

REACTIONS (5)
  - Subileus [Fatal]
  - Hyperuricaemia [Fatal]
  - Acute kidney injury [Fatal]
  - Cardiac failure [Fatal]
  - Pulmonary congestion [Fatal]

NARRATIVE: CASE EVENT DATE: 20180407
